FAERS Safety Report 9137649 (Version 1)
Quarter: 2013Q1

REPORT INFORMATION
  Report Type: Spontaneous
  Country: AU (occurrence: AU)
  Receive Date: 20130304
  Receipt Date: 20130304
  Transmission Date: 20140127
  Serious: Yes (Other)
  Sender: FDA-Public Use
  Company Number: PHHY2013AU012993

PATIENT
  Age: 70 Year
  Sex: Male

DRUGS (8)
  1. VOLTAREN [Suspect]
     Indication: PAIN
     Dosage: 50 MG, ONE B.D.C.C.
     Route: 048
  2. PANADOL OSTEO [Concomitant]
     Dosage: UNK UKN, UNK
  3. AVAMYS [Concomitant]
     Dosage: 27.5 MG, (1 SPRAY DAILY BOTH SIDES)
     Route: 045
  4. COSUDEX [Concomitant]
     Dosage: 50 MG, 1 MANE
     Route: 048
  5. LUCRIN DEPOT [Concomitant]
     Dosage: 30 MG, 1 M.D.U
     Route: 030
  6. PANADEINE FORTE [Concomitant]
     Dosage: 30 MG/500MG, 1-2 Q.IDPRN
     Route: 048
  7. PARIET [Concomitant]
     Indication: GASTROOESOPHAGEAL REFLUX DISEASE
     Dosage: 10 MG, ONE DAILY
     Route: 048
  8. ZANTAC [Concomitant]
     Dosage: 150 MG, ONE NOCTE
     Route: 048

REACTIONS (4)
  - Abdominal discomfort [Recovered/Resolved]
  - Dyspnoea [Recovered/Resolved]
  - Decreased appetite [Recovered/Resolved]
  - Vertigo [Recovered/Resolved]
